FAERS Safety Report 10176485 (Version 1)
Quarter: 2014Q2

REPORT INFORMATION
  Report Type: Spontaneous
  Country: US (occurrence: US)
  Receive Date: 20140516
  Receipt Date: 20140516
  Transmission Date: 20141212
  Serious: Yes (Other)
  Sender: FDA-Public Use
  Company Number: US-SA-2014SA063111

PATIENT
  Age: 81 Year
  Sex: Male

DRUGS (2)
  1. MYTELASE [Suspect]
     Indication: PRODUCT USED FOR UNKNOWN INDICATION
     Route: 065
  2. MYOZYME [Concomitant]

REACTIONS (2)
  - Adverse event [Unknown]
  - Disease progression [Unknown]
